FAERS Safety Report 19469905 (Version 1)
Quarter: 2021Q2

REPORT INFORMATION
  Report Type: Spontaneous
  Country: TR (occurrence: TR)
  Receive Date: 20210628
  Receipt Date: 20210628
  Transmission Date: 20210717
  Serious: Yes (Other)
  Sender: FDA-Public Use
  Company Number: NVSC2020TR350219

PATIENT
  Sex: Female

DRUGS (2)
  1. TRILEPTAL [Suspect]
     Active Substance: OXCARBAZEPINE
     Indication: HYPERTENSION
     Dosage: UNK (CONCENTRATION: 300 MG)
     Route: 065
  2. TRILEPTAL [Suspect]
     Active Substance: OXCARBAZEPINE
     Dosage: UNK (CONCENTRATION 600 MG)
     Route: 065

REACTIONS (3)
  - General physical condition abnormal [Unknown]
  - Product supply issue [Unknown]
  - Loss of consciousness [Unknown]
